FAERS Safety Report 21137005 (Version 2)
Quarter: 2022Q3

REPORT INFORMATION
  Report Type: Spontaneous
  Country: CA (occurrence: CA)
  Receive Date: 20220727
  Receipt Date: 20220728
  Transmission Date: 20221027
  Serious: Yes (Other)
  Sender: FDA-Public Use
  Company Number: CA-NOVARTISPH-NVSC2022CA167302

PATIENT
  Age: 38 Year
  Sex: Female

DRUGS (3)
  1. ACETYLCYSTEINE [Suspect]
     Active Substance: ACETYLCYSTEINE
     Indication: Product used for unknown indication
     Dosage: UNK
     Route: 042
  2. DEXAMETHASONE [Suspect]
     Active Substance: DEXAMETHASONE
     Indication: Product used for unknown indication
     Dosage: UNK
     Route: 031
  3. BENADRYL [Concomitant]
     Active Substance: DIPHENHYDRAMINE HYDROCHLORIDE
     Indication: Product used for unknown indication
     Dosage: UNK UNK, QD
     Route: 065

REACTIONS (13)
  - Asthenia [Recovered/Resolved]
  - Dizziness [Recovered/Resolved]
  - Flushing [Recovered/Resolved]
  - Hypoaesthesia oral [Recovered/Resolved]
  - Malaise [Recovered/Resolved]
  - Paraesthesia oral [Recovered/Resolved]
  - Pharyngeal hypoaesthesia [Recovered/Resolved]
  - Pharyngeal paraesthesia [Recovered/Resolved]
  - Pruritus [Recovered/Resolved]
  - Scratch [Recovered/Resolved]
  - Swelling face [Recovered/Resolved]
  - Anxiety [Recovered/Resolved]
  - Nausea [Recovered/Resolved]
